FAERS Safety Report 8144771-X (Version None)
Quarter: 2012Q1

REPORT INFORMATION
  Report Type: 
  Country: None (occurrence: None)
  Receive Date: 20120217
  Receipt Date: 20120208
  Transmission Date: 20120608
  Serious: Yes (Hospitalization)
  Sender: FDA-Public Use
  Company Number: US-JNJFOC-20120205615

PATIENT
  Sex: Male
  Weight: 47 kg

DRUGS (12)
  1. PREDNISONE [Concomitant]
  2. MERCAPTOPURINE [Concomitant]
  3. FOLIC ACID [Concomitant]
  4. SINGULAIR [Concomitant]
  5. MELATONIN [Concomitant]
  6. OMEPRAZOLE [Concomitant]
  7. PROBIOTICS [Concomitant]
  8. ALLEGRA [Concomitant]
  9. IRON [Concomitant]
  10. REMICADE [Suspect]
     Indication: IRRITABLE BOWEL SYNDROME
     Route: 042
     Dates: start: 20100722
  11. MESALAMINE [Concomitant]
  12. HUMIRA [Concomitant]
     Dates: start: 20100930

REACTIONS (1)
  - PROCTITIS [None]
